FAERS Safety Report 8839653 (Version 1)
Quarter: 2012Q4

REPORT INFORMATION
  Report Type: Spontaneous
  Country: US (occurrence: None)
  Receive Date: 20121012
  Receipt Date: 20121012
  Transmission Date: 20130627
  Serious: No
  Sender: FDA-Public Use
  Company Number: None

PATIENT
  Sex: Female
  Weight: 60.24 kg

DRUGS (1)
  1. IBANDRONATE SODIUM [Suspect]
     Dosage: 150mg monthly PO
     Route: 048
     Dates: start: 201205

REACTIONS (3)
  - Arthralgia [None]
  - Quality of life decreased [None]
  - Movement disorder [None]
